FAERS Safety Report 16269983 (Version 1)
Quarter: 2019Q2

REPORT INFORMATION
  Report Type: Spontaneous
  Country: DE (occurrence: DE)
  Receive Date: 20190503
  Receipt Date: 20190503
  Transmission Date: 20190711
  Serious: Yes (Other)
  Sender: FDA-Public Use
  Company Number: DE-PFIZER INC-2019184977

PATIENT
  Age: 57 Year
  Sex: Male
  Weight: 65 kg

DRUGS (3)
  1. CANDESARTAN. [Interacting]
     Active Substance: CANDESARTAN
     Dosage: UNK
     Dates: start: 20180812
  2. CANDESARTAN. [Interacting]
     Active Substance: CANDESARTAN
     Dosage: 8 MG, CYCLIC (EVERY 12 HRS)
     Route: 048
     Dates: start: 20190331
  3. VENLAFAXINE HCL [Suspect]
     Active Substance: VENLAFAXINE HYDROCHLORIDE
     Indication: DEPRESSION
     Dosage: 75 MG, CYCLIC (EVERY 12 HRS)
     Route: 048
     Dates: start: 20120411

REACTIONS (4)
  - Product use issue [Unknown]
  - Loss of consciousness [Recovered/Resolved]
  - Drug interaction [Recovered/Resolved]
  - Syncope [Recovered/Resolved]

NARRATIVE: CASE EVENT DATE: 20120411
